FAERS Safety Report 6214078-6 (Version None)
Quarter: 2009Q2

REPORT INFORMATION
  Report Type: 
  Country: None (occurrence: None)
  Receive Date: 20090604
  Receipt Date: 20090527
  Transmission Date: 20091009
  Serious: Yes (Hospitalization)
  Sender: FDA-Public Use
  Company Number: AT-ROCHE-572696

PATIENT
  Sex: Female
  Weight: 60 kg

DRUGS (16)
  1. CAPECITABINE [Suspect]
     Indication: BREAST CANCER
     Dosage: LAST DOSE PRIOR TO SAE ON 5 MAY 2008
     Route: 048
     Dates: start: 20080207
  2. EPIRUBICIN [Suspect]
     Indication: BREAST CANCER
     Dosage: FORM: INFUSION; FREQUENCY: 1X; LAST DOSE PRIOR TO SAE ON 23 MAY 2008
     Route: 042
     Dates: start: 20080207
  3. TAXOTERE [Suspect]
     Indication: BREAST CANCER
     Dosage: FORM: INFUSION; FREQUENCY: 1X; LAST DOSE PRIOR TO SAE ON 23 MAY 2008
     Route: 042
     Dates: start: 20080207
  4. ARANESP [Concomitant]
     Dates: end: 20080523
  5. LOVENOX [Concomitant]
  6. FORTECORTIN [Concomitant]
     Dates: start: 20080502, end: 20080505
  7. SEROPRAM [Concomitant]
  8. PANTOPRAZOLE SODIUM [Concomitant]
  9. EMEND [Concomitant]
     Dates: end: 20080505
  10. THYREX [Concomitant]
     Dates: start: 20080101
  11. LASIX [Concomitant]
  12. XANOR [Concomitant]
  13. GLANDOMED [Concomitant]
     Dosage: DRUG: GLANDOMED SOLUTION
  14. NERISONA [Concomitant]
  15. NEUROBION FORTE [Concomitant]
  16. LYRICA [Concomitant]

REACTIONS (1)
  - GENERAL PHYSICAL HEALTH DETERIORATION [None]
